FAERS Safety Report 4402464-6 (Version None)
Quarter: 2004Q2

REPORT INFORMATION
  Report Type: 
  Country: None (occurrence: None)
  Receive Date: 20040618
  Receipt Date: 20040305
  Transmission Date: 20050107
  Serious: No
  Sender: FDA-Public Use
  Company Number: US-JNJFOC-20040302103

PATIENT
  Age: 28 Year
  Sex: Female
  Weight: 61.2356 kg

DRUGS (2)
  1. ORTHO EVRA [Suspect]
     Indication: CONTRACEPTION
     Dosage: 1 DOSE(S), 3 IN 4 WEEK, TRANSDERMAL
     Route: 062
     Dates: start: 20020101, end: 20040128
  2. DOXYCYCLINE [Concomitant]

REACTIONS (5)
  - FATIGUE [None]
  - OEDEMA [None]
  - OLIGOMENORRHOEA [None]
  - STRESS SYMPTOMS [None]
  - WEIGHT INCREASED [None]
